FAERS Safety Report 5404421-X (Version None)
Quarter: 2007Q3

REPORT INFORMATION
  Report Type: 
  Country: None (occurrence: None)
  Receive Date: 20070802
  Receipt Date: 20070723
  Transmission Date: 20080115
  Serious: Yes (Death)
  Sender: FDA-Public Use
  Company Number: US-SANOFI-SYNTHELABO-A03200703481

PATIENT
  Age: 89 Year
  Sex: Female

DRUGS (7)
  1. POTASSIUM CHLORIDE [Concomitant]
     Dosage: UNK
     Route: 065
  2. DIURETIC [Concomitant]
     Dosage: UNK
     Route: 065
  3. SYNTHROID [Concomitant]
     Dosage: UNK
     Route: 065
  4. COUMADIN [Concomitant]
     Dosage: UNK
     Route: 065
  5. AMBIEN [Suspect]
     Indication: INSOMNIA
     Dosage: UNK
     Route: 048
     Dates: start: 20061003
  6. ULTRAM [Concomitant]
     Dosage: UNK
     Route: 048
  7. ALPRAZOLAM [Concomitant]
     Route: 048

REACTIONS (7)
  - CONCUSSION [None]
  - FAILURE TO THRIVE [None]
  - FALL [None]
  - HAEMATOMA [None]
  - HALLUCINATION [None]
  - LOSS OF CONSCIOUSNESS [None]
  - SKULL FRACTURE [None]
